FAERS Safety Report 13579476 (Version 8)
Quarter: 2018Q1

REPORT INFORMATION
  Report Type: Report from Study
  Country: MX (occurrence: MX)
  Receive Date: 20170525
  Receipt Date: 20180302
  Transmission Date: 20180508
  Serious: Yes (Hospitalization, Disabling)
  Sender: FDA-Public Use
  Company Number: MX-ROCHE-1919683

PATIENT
  Age: 48 Year
  Sex: Female

DRUGS (54)
  1. PERTUZUMAB. [Suspect]
     Active Substance: PERTUZUMAB
     Indication: HER-2 POSITIVE BREAST CANCER
     Dosage: LOADING DOSE?THERAPY DICONTINUED ON 09/APR/2017?DATE OF LAST DOSE PRIOR TO SAE:  28/MAR/2017
     Route: 042
     Dates: start: 20131218, end: 20170409
  2. DEXAMETASONA [Concomitant]
     Active Substance: DEXAMETHASONE
     Route: 065
     Dates: start: 20140430, end: 20140430
  3. ONDANSETRON [Concomitant]
     Active Substance: ONDANSETRON
     Route: 065
     Dates: start: 20131218, end: 20131218
  4. ONDANSETRON [Concomitant]
     Active Substance: ONDANSETRON
     Route: 065
     Dates: start: 20140219, end: 20140219
  5. ONDANSETRON [Concomitant]
     Active Substance: ONDANSETRON
     Route: 065
     Dates: start: 20140521, end: 20140521
  6. CLORFENAMINA [Concomitant]
     Route: 065
     Dates: start: 20131218, end: 20131218
  7. HEPARINA [Concomitant]
     Active Substance: HEPARIN SODIUM
     Dosage: 1000 U
     Route: 042
     Dates: start: 20131218, end: 20131218
  8. AMLODIPINE [Concomitant]
     Active Substance: AMLODIPINE BESYLATE
     Route: 065
     Dates: start: 20141014
  9. RANITIDINE. [Concomitant]
     Active Substance: RANITIDINE
     Route: 065
     Dates: start: 20140409, end: 20140409
  10. DEXAMETASONA [Concomitant]
     Active Substance: DEXAMETHASONE
     Route: 065
     Dates: start: 20131218, end: 20131218
  11. DEXAMETASONA [Concomitant]
     Active Substance: DEXAMETHASONE
     Route: 065
     Dates: start: 20140521, end: 20140521
  12. ONDANSETRON [Concomitant]
     Active Substance: ONDANSETRON
     Route: 065
     Dates: start: 20140702, end: 20140702
  13. CLORFENAMINA [Concomitant]
     Route: 065
     Dates: start: 20140219, end: 20140219
  14. CLORFENAMINA [Concomitant]
     Route: 065
     Dates: start: 20140409, end: 20140409
  15. CLORFENAMINA [Concomitant]
     Route: 065
     Dates: start: 20140611, end: 20140611
  16. LETROZOL [Concomitant]
     Active Substance: LETROZOLE
     Route: 065
     Dates: start: 20151202
  17. RANISEN [Concomitant]
     Route: 065
     Dates: start: 20140108, end: 20140108
  18. TRASTUZUMAB. [Suspect]
     Active Substance: TRASTUZUMAB
     Indication: HER-2 POSITIVE BREAST CANCER
     Dosage: LOADING DOSE?THERAPY DICONTINUED ON 09/APR/2017?DATE OF LAST DOSE PRIOR TO SAE: 28/MAR/2017
     Route: 042
     Dates: start: 20131218, end: 20170409
  19. PACLITAXEL. [Suspect]
     Active Substance: PACLITAXEL
     Indication: HER-2 POSITIVE BREAST CANCER
     Dosage: DATE OF LAST DOSE PRIOR TO SAE: 23/SEP/2015
     Route: 042
     Dates: start: 20131218
  20. ONDANSETRON [Concomitant]
     Active Substance: ONDANSETRON
     Route: 065
     Dates: start: 20140129, end: 20140129
  21. CLORFENAMINA [Concomitant]
     Route: 065
     Dates: start: 20140702, end: 20140702
  22. RANITIDINE. [Concomitant]
     Active Substance: RANITIDINE
     Route: 065
     Dates: start: 20140129, end: 20140129
  23. DEXAMETASONA [Concomitant]
     Active Substance: DEXAMETHASONE
     Route: 065
     Dates: start: 20140129, end: 20140129
  24. DEXAMETASONA [Concomitant]
     Active Substance: DEXAMETHASONE
     Route: 065
     Dates: start: 20140312, end: 20140312
  25. ONDANSETRON [Concomitant]
     Active Substance: ONDANSETRON
     Route: 065
     Dates: start: 20140108, end: 20140108
  26. CLORFENAMINA [Concomitant]
     Route: 065
     Dates: start: 20140129, end: 20140129
  27. HEPARINA [Concomitant]
     Active Substance: HEPARIN SODIUM
     Dosage: 1000 U
     Route: 042
     Dates: start: 20140219, end: 20140219
  28. ONDANSETRON [Concomitant]
     Active Substance: ONDANSETRON
     Route: 065
     Dates: start: 20140430, end: 20140430
  29. CLORFENAMINA [Concomitant]
     Route: 065
     Dates: start: 20140312, end: 20140312
  30. CLORFENAMINA [Concomitant]
     Route: 065
     Dates: start: 20140430, end: 20140430
  31. PREGABALINA [Concomitant]
     Active Substance: PREGABALIN
     Route: 065
     Dates: start: 201312, end: 20140106
  32. ENALAPRIL [Concomitant]
     Active Substance: ENALAPRIL
     Route: 065
     Dates: start: 20140401
  33. RANITIDINE. [Concomitant]
     Active Substance: RANITIDINE
     Route: 065
     Dates: start: 20140702, end: 20140702
  34. DEXAMETASONA [Concomitant]
     Active Substance: DEXAMETHASONE
     Route: 065
     Dates: start: 20140702, end: 20140702
  35. DULOXETINA [Concomitant]
     Active Substance: DULOXETINE
     Route: 065
     Dates: start: 20140106
  36. SUPRADOL [Concomitant]
     Route: 065
     Dates: start: 20140110, end: 20140112
  37. DEXAMETASONA [Concomitant]
     Active Substance: DEXAMETHASONE
     Route: 065
     Dates: start: 20140108, end: 20140108
  38. DEXAMETASONA [Concomitant]
     Active Substance: DEXAMETHASONE
     Route: 065
     Dates: start: 20140409, end: 20140409
  39. ONDANSETRON [Concomitant]
     Active Substance: ONDANSETRON
     Route: 065
     Dates: start: 20140409, end: 20140409
  40. ONDANSETRON [Concomitant]
     Active Substance: ONDANSETRON
     Route: 065
     Dates: start: 20140611, end: 20140611
  41. OMEPRAZOL [Concomitant]
     Active Substance: OMEPRAZOLE
     Route: 065
     Dates: start: 20131220
  42. RANISEN [Concomitant]
     Indication: PREMEDICATION
     Route: 065
     Dates: start: 20131218, end: 20131218
  43. RANITIDINE. [Concomitant]
     Active Substance: RANITIDINE
     Route: 065
     Dates: start: 20140219, end: 20140219
  44. RANITIDINE. [Concomitant]
     Active Substance: RANITIDINE
     Route: 065
     Dates: start: 20140312, end: 20140312
  45. RANITIDINE. [Concomitant]
     Active Substance: RANITIDINE
     Route: 065
     Dates: start: 20140430, end: 20140430
  46. DEXAMETASONA [Concomitant]
     Active Substance: DEXAMETHASONE
     Route: 065
     Dates: start: 20140219, end: 20140219
  47. DEXAMETASONA [Concomitant]
     Active Substance: DEXAMETHASONE
     Route: 065
     Dates: start: 20140611, end: 20140611
  48. ONDANSETRON [Concomitant]
     Active Substance: ONDANSETRON
     Route: 065
     Dates: start: 20140312, end: 20140312
  49. CLORFENAMINA [Concomitant]
     Route: 065
     Dates: start: 20140108, end: 20140108
  50. CLORFENAMINA [Concomitant]
     Route: 065
     Dates: start: 20140521, end: 20140521
  51. HEPARINA [Concomitant]
     Active Substance: HEPARIN SODIUM
     Dosage: 1000 U
     Route: 042
     Dates: start: 20140108, end: 20140108
  52. HEPARINA [Concomitant]
     Active Substance: HEPARIN SODIUM
     Dosage: 1000 U
     Route: 042
     Dates: start: 20140129, end: 20140129
  53. RANITIDINE. [Concomitant]
     Active Substance: RANITIDINE
     Route: 065
     Dates: start: 20140521, end: 20140521
  54. RANITIDINE. [Concomitant]
     Active Substance: RANITIDINE
     Route: 065
     Dates: start: 20140611, end: 20140611

REACTIONS (1)
  - Femur fracture [Recovered/Resolved with Sequelae]

NARRATIVE: CASE EVENT DATE: 20170409
